FAERS Safety Report 7656675-7 (Version None)
Quarter: 2011Q3

REPORT INFORMATION
  Report Type: 
  Country: None (occurrence: None)
  Receive Date: 20110804
  Receipt Date: 20110728
  Transmission Date: 20111222
  Serious: Yes (Hospitalization, Other)
  Sender: FDA-Public Use
  Company Number: US-MERCK-1012USA01314

PATIENT
  Age: 46 Year
  Sex: Female
  Weight: 66 kg

DRUGS (2)
  1. FOSAMAX [Suspect]
     Route: 048
     Dates: start: 19990901, end: 20091101
  2. FOSAMAX PLUS D [Suspect]
     Indication: OSTEOPOROSIS
     Route: 048
     Dates: start: 19990901, end: 20091101

REACTIONS (21)
  - OSTEONECROSIS OF JAW [None]
  - HERPES ZOSTER [None]
  - ANXIETY [None]
  - UPPER RESPIRATORY TRACT INFECTION [None]
  - ORAL DISORDER [None]
  - FEMUR FRACTURE [None]
  - LOW TURNOVER OSTEOPATHY [None]
  - SINUSITIS [None]
  - MUSCLE STRAIN [None]
  - RHINITIS ALLERGIC [None]
  - FALL [None]
  - GASTROOESOPHAGEAL REFLUX DISEASE [None]
  - MUSCULOSKELETAL CHEST PAIN [None]
  - INTERVERTEBRAL DISC PROTRUSION [None]
  - ADVERSE EVENT [None]
  - CEREBROVASCULAR ACCIDENT [None]
  - OTITIS MEDIA [None]
  - DEPRESSION [None]
  - BACK PAIN [None]
  - HYPERTENSION [None]
  - DENTAL FISTULA [None]
